FAERS Safety Report 5780066-7 (Version None)
Quarter: 2008Q2

REPORT INFORMATION
  Report Type: 
  Country: None (occurrence: None)
  Receive Date: 20080620
  Receipt Date: 20080609
  Transmission Date: 20081010
  Serious: Yes (Other)
  Sender: FDA-Public Use
  Company Number: GB-NOVOPROD-276117

PATIENT
  Age: 12 Year
  Sex: Male

DRUGS (2)
  1. NORDITROPIN [Suspect]
     Indication: GROWTH HORMONE DEFICIENCY
     Dosage: 1 MG, QD
     Route: 058
     Dates: start: 20080225, end: 20080514
  2. TRIPTORELIN [Concomitant]
     Dosage: 11.25 MG, UNK
     Route: 030
     Dates: start: 20080225, end: 20080514

REACTIONS (2)
  - ASTROCYTOMA [None]
  - CENTRAL NERVOUS SYSTEM LESION [None]
